FAERS Safety Report 6316170-4 (Version None)
Quarter: 2009Q3

REPORT INFORMATION
  Report Type: 
  Country: None (occurrence: None)
  Receive Date: 20090820
  Receipt Date: 20090814
  Transmission Date: 20100115
  Serious: Yes (Other)
  Sender: FDA-Public Use
  Company Number: CH-JNJFOC-20090804308

PATIENT
  Age: 31 Year
  Sex: Female

DRUGS (4)
  1. TOPAMAX [Suspect]
     Indication: ALCOHOL USE
     Route: 048
  2. XANAX [Suspect]
     Indication: ANXIETY DISORDER
     Route: 048
  3. SEROQUEL [Suspect]
     Indication: ANXIETY DISORDER
     Route: 048
  4. RIVOTRIL [Suspect]
     Indication: ANXIETY DISORDER
     Route: 048

REACTIONS (2)
  - ABORTION INDUCED [None]
  - DRUG EXPOSURE DURING PREGNANCY [None]
